FAERS Safety Report 6165819-8 (Version None)
Quarter: 2009Q2

REPORT INFORMATION
  Report Type: 
  Country: None (occurrence: None)
  Receive Date: 20090422
  Receipt Date: 20090414
  Transmission Date: 20091009
  Serious: Yes (Other)
  Sender: FDA-Public Use
  Company Number: GXKR2009JP04607

PATIENT
  Age: 65 Year
  Sex: Male

DRUGS (8)
  1. CHLORPROMAZINE [Suspect]
     Dosage: 75 MG, DAILY,
  2. FLUVOXAMINE MALEATE [Suspect]
     Dosage: 150 MG/DAY, ORAL
     Route: 048
  3. MIANSERIN (NGX) (MIANSERIN) UNKNOWN [Suspect]
     Dosage: 20 MG/DAY, ORAL
     Route: 048
  4. CLOMIPRAMINE (NGX) (CLOMIPRAMINE) UNKNOWN [Suspect]
     Indication: DEPRESSION
     Dosage: 150 MG/DAY,
  5. SULPIRIDE (SULPIRIDE) [Concomitant]
  6. BROMAZEPAM (BROMAZEPAM) [Concomitant]
  7. ESTAZOLAM [Concomitant]
  8. BROTIZOLAM (BROTIZOLAM) [Concomitant]

REACTIONS (12)
  - BLADDER DISTENSION [None]
  - DEPRESSION [None]
  - EXTRINSIC VASCULAR COMPRESSION [None]
  - INHIBITORY DRUG INTERACTION [None]
  - MYALGIA [None]
  - OEDEMA PERIPHERAL [None]
  - PULMONARY EMBOLISM [None]
  - SKIN DISCOLOURATION [None]
  - STUPOR [None]
  - TREATMENT FAILURE [None]
  - URINARY RETENTION [None]
  - VASOCONSTRICTION [None]
